FAERS Safety Report 23425216 (Version 1)
Quarter: 2024Q1

REPORT INFORMATION
  Report Type: Spontaneous
  Country: AU (occurrence: AU)
  Receive Date: 20240121
  Receipt Date: 20240121
  Transmission Date: 20240410
  Serious: Yes (Hospitalization, Other)
  Sender: FDA-Public Use
  Company Number: AU-BoehringerIngelheim-2024-BI-002705

PATIENT
  Age: 71 Year
  Sex: Male

DRUGS (23)
  1. EMPAGLIFLOZIN [Suspect]
     Active Substance: EMPAGLIFLOZIN
     Indication: Type 2 diabetes mellitus
     Route: 048
     Dates: start: 2000, end: 20231003
  2. DARATUMUMAB [Suspect]
     Active Substance: DARATUMUMAB
     Indication: Plasma cell myeloma
     Route: 058
     Dates: start: 20230918, end: 20231003
  3. DEXAMETHASONE [Suspect]
     Active Substance: DEXAMETHASONE
     Indication: Plasma cell myeloma
     Route: 048
     Dates: start: 20230918, end: 20231002
  4. ACETAMINOPHEN [Suspect]
     Active Substance: ACETAMINOPHEN
     Indication: Plasma cell myeloma
     Dosage: ONCE TAKEN FOR PLASMA CELL MYELOMA
     Route: 048
     Dates: start: 20230918
  5. POMALIDOMIDE [Suspect]
     Active Substance: POMALIDOMIDE
     Indication: Plasma cell myeloma
     Route: 048
     Dates: start: 20230918, end: 20231003
  6. PARACETAMOL OSTEO [Concomitant]
     Indication: Back pain
     Dosage: 2 DOSE UNSPECIFIED. INTERVAL: 1 AS NECESSARY FOR BACK PAIN.
     Route: 048
     Dates: start: 202112, end: 20231101
  7. PARACETAMOL OSTEO [Concomitant]
     Indication: Myalgia
  8. PARACETAMOL OSTEO [Concomitant]
     Indication: Bone pain
  9. NOVORAPID [Concomitant]
     Active Substance: INSULIN ASPART
     Indication: Type 2 diabetes mellitus
     Route: 058
     Dates: start: 20230918, end: 20230919
  10. NOVORAPID [Concomitant]
     Active Substance: INSULIN ASPART
     Route: 058
     Dates: start: 20230918, end: 20230919
  11. SULFAMETHOXAZOLE\TRIMETHOPRIM [Concomitant]
     Active Substance: SULFAMETHOXAZOLE\TRIMETHOPRIM
     Indication: Antifungal prophylaxis
     Dosage: 4 DOSE UNSPECIFIED, INTERVAL OF 1 WEEK
     Route: 048
     Dates: start: 20230918, end: 20231019
  12. RYZODEG 70/30 [Concomitant]
     Active Substance: INSULIN ASPART\INSULIN DEGLUDEC
     Indication: Type 2 diabetes mellitus
     Route: 058
     Dates: start: 20230925, end: 20230925
  13. APIXABAN [Concomitant]
     Active Substance: APIXABAN
     Indication: Thrombosis prophylaxis
     Route: 048
     Dates: start: 2022, end: 20231003
  14. CALCIUM CARBONATE [Concomitant]
     Active Substance: CALCIUM CARBONATE
     Indication: Mineral supplementation
     Route: 048
     Dates: start: 202209, end: 20231003
  15. GLICLAZIDE [Concomitant]
     Active Substance: GLICLAZIDE
     Indication: Type 2 diabetes mellitus
     Route: 048
     Dates: start: 2000, end: 20231003
  16. LORATADINE [Concomitant]
     Active Substance: LORATADINE
     Indication: Plasma cell myeloma
     Dosage: TAKEN 1 TABLET IN TOTAL
     Route: 048
     Dates: start: 20230918
  17. METOPROLOL [Concomitant]
     Active Substance: METOPROLOL
     Indication: Atrial fibrillation
     Dosage: 0.5 DOSE UNSPECIFIED
     Route: 048
     Dates: start: 20230907, end: 20231011
  18. PANTOPRAZOLE [Concomitant]
     Active Substance: PANTOPRAZOLE
     Indication: Prophylaxis against gastrointestinal ulcer
     Route: 048
     Dates: start: 202112
  19. CENOVIS ONCE DAILY MEN^S MULTI [Concomitant]
     Indication: Vitamin supplementation
     Route: 048
     Dates: start: 202209
  20. SOUVENAID [Concomitant]
     Indication: Dementia
     Dosage: 1 DOSE DAILY
     Route: 048
     Dates: start: 2021
  21. DONEPEZIL [Concomitant]
     Active Substance: DONEPEZIL
     Indication: Dementia
     Route: 048
     Dates: start: 2021, end: 20231120
  22. ROSUVASTATIN [Concomitant]
     Active Substance: ROSUVASTATIN
     Indication: Hypercholesterolaemia
     Dosage: 2 DOSE IN ONE DAY INTERVAL
     Route: 048
     Dates: start: 202201, end: 20231019
  23. VACICLOVIR [Concomitant]
     Indication: Antiviral prophylaxis
     Route: 048
     Dates: start: 20230919

REACTIONS (2)
  - Diabetic ketoacidosis [Recovered/Resolved]
  - Febrile neutropenia [Not Recovered/Not Resolved]

NARRATIVE: CASE EVENT DATE: 20231003
